FAERS Safety Report 6173588-0 (Version None)
Quarter: 2009Q2

REPORT INFORMATION
  Report Type: 
  Country: None (occurrence: None)
  Receive Date: 20090430
  Receipt Date: 20090422
  Transmission Date: 20091009
  Serious: Yes (Hospitalization, Other)
  Sender: FDA-Public Use
  Company Number: US-CVT-090222

PATIENT

DRUGS (7)
  1. RANEXA [Suspect]
     Indication: ANGINA PECTORIS
     Dosage: 500 MG, BID
     Route: 048
     Dates: start: 20081101, end: 20081101
  2. RANEXA [Interacting]
     Dosage: 2000 MG, BID
     Route: 048
     Dates: start: 20081101, end: 20081101
  3. RANEXA [Interacting]
     Dosage: 1000 MG, BID
     Route: 048
     Dates: start: 20081101
  4. CARDIZEM [Interacting]
  5. METFORMIN                          /00082701/ [Concomitant]
  6. COREG [Concomitant]
  7. ASPIRIN [Concomitant]
     Dosage: 81 MG, QD
     Route: 048

REACTIONS (13)
  - ACCIDENTAL OVERDOSE [None]
  - COMA [None]
  - COORDINATION ABNORMAL [None]
  - DIZZINESS [None]
  - DRUG INTERACTION [None]
  - DRUG PRESCRIBING ERROR [None]
  - DYSARTHRIA [None]
  - FEELING DRUNK [None]
  - HALLUCINATION, AUDITORY [None]
  - HALLUCINATION, VISUAL [None]
  - INCOHERENT [None]
  - LOSS OF CONSCIOUSNESS [None]
  - MEMORY IMPAIRMENT [None]
